FAERS Safety Report 20308975 (Version 1)
Quarter: 2022Q1

REPORT INFORMATION
  Report Type: Spontaneous
  Country: US (occurrence: None)
  Receive Date: 20220106
  Receipt Date: 20220106
  Transmission Date: 20220423
  Serious: Yes (Hospitalization)
  Sender: FDA-Public Use
  Company Number: None

PATIENT
  Age: 37 Year
  Sex: Male
  Weight: 81 kg

DRUGS (7)
  1. EQUATE OMEPRAZOLE [Suspect]
     Active Substance: OMEPRAZOLE
     Indication: Irritable bowel syndrome
     Dosage: OTHER QUANTITY : 1 TABLET(S);?FREQUENCY : DAILY;?
     Route: 048
     Dates: start: 20210101, end: 20220106
  2. MAXIMUM STRENGTH ANTACID [Suspect]
     Active Substance: ALUMINUM HYDROXIDE\DIMETHICONE\MAGNESIUM HYDROXIDE
     Indication: Gastrooesophageal reflux disease
     Dosage: OTHER QUANTITY : 2 TEASPOON(S);?FREQUENCY : AS NEEDED;?
     Route: 048
     Dates: start: 20200101, end: 20220104
  3. ALBUTEROL [Concomitant]
     Active Substance: ALBUTEROL
  4. AMLODIPINE [Concomitant]
     Active Substance: AMLODIPINE BESYLATE
  5. TRAZODONE [Concomitant]
     Active Substance: TRAZODONE HYDROCHLORIDE
  6. OMEPRAZOLE [Concomitant]
     Active Substance: OMEPRAZOLE
  7. LORATADINE [Concomitant]
     Active Substance: LORATADINE

REACTIONS (6)
  - Dysuria [None]
  - Chromaturia [None]
  - Chest pain [None]
  - Pain in extremity [None]
  - Gastritis [None]
  - Product identification number issue [None]

NARRATIVE: CASE EVENT DATE: 20220104
